FAERS Safety Report 4573696-1 (Version None)
Quarter: 2005Q1

REPORT INFORMATION
  Report Type: 
  Country: None (occurrence: None)
  Receive Date: 20050203
  Receipt Date: 20050124
  Transmission Date: 20050727
  Serious: Yes (Hospitalization)
  Sender: FDA-Public Use
  Company Number: 2005US000114

PATIENT
  Age: 36 Year
  Sex: Male
  Weight: 69.8 kg

DRUGS (5)
  1. PROGRAF [Suspect]
     Indication: PROPHYLAXIS AGAINST TRANSPLANT REJECTION
     Dosage: 8.50 MG, BID, ORAL
     Route: 048
  2. ZENAPAX [Suspect]
     Indication: PROPHYLAXIS AGAINST TRANSPLANT REJECTION
     Dosage: 1.00 MG/KG
     Dates: start: 20040630, end: 20040830
  3. CELLCEPT [Suspect]
     Indication: PROPHYLAXIS AGAINST TRANSPLANT REJECTION
     Dosage: 500.00 MG, BID
  4. PREDNISONE [Suspect]
     Indication: PROPHYLAXIS AGAINST TRANSPLANT REJECTION
     Dosage: 20.00 MG, UID/QD
  5. VALCYTE [Concomitant]

REACTIONS (2)
  - KIDNEY TRANSPLANT REJECTION [None]
  - NEPHROSCLEROSIS [None]
